FAERS Safety Report 8373920-3 (Version None)
Quarter: 2012Q2

REPORT INFORMATION
  Report Type: 
  Country: None (occurrence: None)
  Receive Date: 20120521
  Receipt Date: 20120511
  Transmission Date: 20120825
  Serious: Yes (Hospitalization)
  Sender: FDA-Public Use
  Company Number: ES-ROCHE-1068588

PATIENT
  Age: 33 Year
  Sex: Female

DRUGS (6)
  1. VALCYTE [Concomitant]
     Indication: ANTIVIRAL PROPHYLAXIS
     Route: 048
     Dates: end: 20091229
  2. TACROLIMUS [Interacting]
     Indication: RENAL TRANSPLANT
     Route: 048
  3. PAROXETINE HYDROCHLORIDE [Concomitant]
     Indication: DEPRESSION
     Route: 048
     Dates: end: 20091229
  4. CELLCEPT [Suspect]
     Indication: RENAL TRANSPLANT
     Route: 048
     Dates: start: 20101001
  5. PREDNISONE TAB [Interacting]
     Indication: RENAL TRANSPLANT
     Route: 048
  6. OMEPRAZOLE [Concomitant]
     Indication: GASTRITIS PROPHYLAXIS
     Route: 048

REACTIONS (1)
  - EYE INFECTION TOXOPLASMAL [None]
